FAERS Safety Report 4420703-2 (Version None)
Quarter: 2004Q3

REPORT INFORMATION
  Report Type: 
  Country: None (occurrence: None)
  Receive Date: 20040809
  Receipt Date: 20040430
  Transmission Date: 20050211
  Serious: No
  Sender: FDA-Public Use
  Company Number: US-GLAXOSMITHKLINE-A0509116A

PATIENT
  Sex: Female

DRUGS (6)
  1. PAXIL [Suspect]
     Dosage: 5MG PER DAY
     Route: 048
  2. XANAX [Concomitant]
  3. ATACAND [Concomitant]
  4. ZYRTEC [Concomitant]
  5. SYNTHROID [Concomitant]
  6. XALATAN [Concomitant]

REACTIONS (4)
  - EAR PAIN [None]
  - NECK PAIN [None]
  - PAIN IN JAW [None]
  - SOMNOLENCE [None]
